FAERS Safety Report 11379014 (Version 1)
Quarter: 2015Q3

REPORT INFORMATION
  Report Type: Spontaneous
  Country: US (occurrence: None)
  Receive Date: 20150812
  Receipt Date: 20150812
  Transmission Date: 20151125
  Serious: Yes (Hospitalization)
  Sender: FDA-Public Use
  Company Number: None

PATIENT
  Age: 71 Year
  Sex: Male
  Weight: 67.9 kg

DRUGS (1)
  1. VENLAFAXINE [Suspect]
     Active Substance: VENLAFAXINE HYDROCHLORIDE
     Indication: DEPRESSION
     Dosage: AM
     Route: 048
     Dates: start: 20150702, end: 20150807

REACTIONS (3)
  - Lung infiltration [None]
  - White blood cell count increased [None]
  - Agitation [None]

NARRATIVE: CASE EVENT DATE: 20150804
